FAERS Safety Report 6128967-4 (Version None)
Quarter: 2009Q1

REPORT INFORMATION
  Report Type: 
  Country: None (occurrence: None)
  Receive Date: 20090324
  Receipt Date: 20090317
  Transmission Date: 20090719
  Serious: Yes (Other)
  Sender: FDA-Public Use
  Company Number: PHHY2009GB07207

PATIENT
  Age: 40 Year
  Sex: Male

DRUGS (1)
  1. ELIDEL [Suspect]
     Indication: SEBORRHOEIC DERMATITIS
     Dosage: UNK
     Route: 061
     Dates: start: 20090101, end: 20090201

REACTIONS (4)
  - CONDITION AGGRAVATED [None]
  - DERMATITIS [None]
  - RASH [None]
  - ROSACEA [None]
